FAERS Safety Report 18192788 (Version 5)
Quarter: 2021Q4

REPORT INFORMATION
  Report Type: Spontaneous
  Country: US (occurrence: US)
  Receive Date: 20200825
  Receipt Date: 20211208
  Transmission Date: 20220303
  Serious: No
  Sender: FDA-Public Use
  Company Number: US-VERTEX PHARMACEUTICALS-2020-017059

PATIENT
  Sex: Female
  Weight: 100 kg

DRUGS (3)
  1. TRIKAFTA [Suspect]
     Active Substance: ELEXACAFTOR\IVACAFTOR\TEZACAFTOR
     Indication: Cystic fibrosis
     Dosage: 2 ORANGE TABS(100 MG ELEXA/ 50 MG TEZA/ 75 MG IVA)AM; 1 BLUE TAB (150MG IVA)PM
     Route: 048
     Dates: start: 20200211, end: 2020
  2. TRIKAFTA [Suspect]
     Active Substance: ELEXACAFTOR\IVACAFTOR\TEZACAFTOR
     Dosage: KALYDECO ALTERNATING WITH TRIKAFTA (1 ORANGE/1 BLUE TAB)
     Route: 048
     Dates: start: 202012, end: 20211021
  3. PREDNISONE [Suspect]
     Active Substance: PREDNISONE
     Indication: Rheumatic disorder
     Dosage: 4 MG
     Route: 065

REACTIONS (6)
  - Oedema peripheral [Not Recovered/Not Resolved]
  - Diarrhoea [Recovered/Resolved]
  - Hypovitaminosis [Unknown]
  - Weight increased [Unknown]
  - Anaemia [Unknown]
  - Tinnitus [Recovered/Resolved]

NARRATIVE: CASE EVENT DATE: 20200101
